FAERS Safety Report 5159744-9 (Version None)
Quarter: 2006Q4

REPORT INFORMATION
  Report Type: 
  Country: None (occurrence: None)
  Receive Date: 20061129
  Receipt Date: 20051031
  Transmission Date: 20070319
  Serious: No
  Sender: FDA-Public Use
  Company Number: US-GLAXOSMITHKLINE-A0580293A

PATIENT
  Age: 54 Year
  Sex: Female

DRUGS (8)
  1. WELLBUTRIN SR [Suspect]
     Indication: DEPRESSION
     Dosage: 150MG TWICE PER DAY
     Route: 048
     Dates: start: 20051021
  2. MIRTAZAPINE [Concomitant]
  3. KLONOPIN [Concomitant]
  4. NEXIUM [Concomitant]
  5. SEROQUEL [Concomitant]
  6. PROMETRIUM [Concomitant]
  7. ESTRADIOL INJ [Concomitant]
  8. WELLBUTRIN XL [Concomitant]
     Dosage: 300MG PER DAY
     Route: 048

REACTIONS (2)
  - DEPRESSION [None]
  - MALAISE [None]
